FAERS Safety Report 9318352 (Version 1)
Quarter: 2013Q2

REPORT INFORMATION
  Report Type: Spontaneous
  Country: JP (occurrence: JP)
  Receive Date: 20130530
  Receipt Date: 20130530
  Transmission Date: 20140414
  Serious: Yes (Hospitalization)
  Sender: FDA-Public Use
  Company Number: JP-PFIZER INC-2013162337

PATIENT
  Age: 70 Year
  Sex: 0

DRUGS (1)
  1. HALCION [Suspect]
     Indication: INSOMNIA
     Dosage: 0.25 MG, DAILY
     Route: 048
     Dates: start: 20130527, end: 20130527

REACTIONS (3)
  - Fracture [Unknown]
  - Fall [Unknown]
  - Dizziness [Unknown]
